FAERS Safety Report 10302546 (Version 1)
Quarter: 2014Q3

REPORT INFORMATION
  Report Type: Spontaneous
  Country: JP (occurrence: JP)
  Receive Date: 20140714
  Receipt Date: 20140714
  Transmission Date: 20150326
  Serious: Yes (Death, Hospitalization)
  Sender: FDA-Public Use
  Company Number: PHHY2012JP132009

PATIENT
  Age: 68 Year
  Sex: Male

DRUGS (2)
  1. EXJADE [Suspect]
     Active Substance: DEFERASIROX
     Indication: OFF LABEL USE
  2. EXJADE [Suspect]
     Active Substance: DEFERASIROX
     Indication: LEUKAEMIA
     Dosage: 500 MG, DAILY

REACTIONS (2)
  - Disease progression [Fatal]
  - Oral administration complication [Unknown]
